FAERS Safety Report 9152357 (Version 1)
Quarter: 2013Q1

REPORT INFORMATION
  Report Type: Spontaneous
  Country: CA (occurrence: CA)
  Receive Date: 20130308
  Receipt Date: 20130308
  Transmission Date: 20140127
  Serious: Yes (Life-Threatening, Hospitalization, Disabling, Other)
  Sender: FDA-Public Use
  Company Number: CA-TEVA-390531USA

PATIENT
  Age: 34 Year
  Sex: Female
  Weight: 77 kg

DRUGS (9)
  1. AVIANE 28 DAY [Suspect]
     Dosage: 1 DOSAGE FORMS DAILY;
     Route: 048
  2. CHAMPIX [Suspect]
     Route: 065
  3. VENLAFAXINE [Suspect]
     Route: 065
  4. DULCOLAX [Concomitant]
  5. FLEET ENEMA [Concomitant]
     Route: 054
  6. MINERAL OIL EMULSION [Concomitant]
  7. MULTIVITAMIN [Concomitant]
  8. SENOKOT [Concomitant]
  9. TYLENOL [Concomitant]

REACTIONS (11)
  - Amnesia [Recovered/Resolved with Sequelae]
  - Anxiety [Recovered/Resolved with Sequelae]
  - Condition aggravated [Recovered/Resolved with Sequelae]
  - Functional gastrointestinal disorder [Recovered/Resolved with Sequelae]
  - Infection [Recovered/Resolved with Sequelae]
  - Insomnia [Recovered/Resolved with Sequelae]
  - Obsessive-compulsive disorder [Recovered/Resolved with Sequelae]
  - Paralysis [Recovered/Resolved with Sequelae]
  - Mood altered [Recovered/Resolved with Sequelae]
  - Hypertension [Recovered/Resolved with Sequelae]
  - Withdrawal syndrome [Recovered/Resolved with Sequelae]
